FAERS Safety Report 9203466 (Version 1)
Quarter: 2013Q1

REPORT INFORMATION
  Report Type: Spontaneous
  Country: US (occurrence: None)
  Receive Date: 20130329
  Receipt Date: 20130329
  Transmission Date: 20140127
  Serious: Yes (Hospitalization)
  Sender: FDA-Public Use
  Company Number: None

PATIENT
  Age: 79 Year
  Sex: Male
  Weight: 59.1 kg

DRUGS (1)
  1. METOPROLOL [Suspect]
     Indication: HYPERTENSION
     Dosage: 50 MG AM PO
     Route: 048
     Dates: start: 20060605, end: 20130325

REACTIONS (2)
  - Syncope [None]
  - Bradycardia [None]
